FAERS Safety Report 17085051 (Version 1)
Quarter: 2019Q4

REPORT INFORMATION
  Report Type: Spontaneous
  Country: US (occurrence: US)
  Receive Date: 20191030
  Receipt Date: 20191030
  Transmission Date: 20200122
  Serious: Yes (Hospitalization)
  Sender: FDA-Public Use
  Company Number: None

PATIENT
  Age: 20 Year
  Sex: Female

DRUGS (11)
  1. RANITIDINE. [Concomitant]
     Active Substance: RANITIDINE
  2. HYDROCORT CRE [Concomitant]
  3. BUDESONIDE. [Concomitant]
     Active Substance: BUDESONIDE
  4. FLUDROCORT [Concomitant]
  5. TOPIRAMATE. [Concomitant]
     Active Substance: TOPIRAMATE
  6. INTROVALE [Concomitant]
     Active Substance: ETHINYL ESTRADIOL\LEVONORGESTREL
  7. NADOLOL. [Concomitant]
     Active Substance: NADOLOL
  8. HUMIRA [Suspect]
     Active Substance: ADALIMUMAB
     Indication: CROHN^S DISEASE
     Dosage: ?          OTHER DOSE:40MG/0.4ML;?
     Route: 058
     Dates: start: 20190810
  9. MG [Concomitant]
     Active Substance: MAGNESIUM
  10. LEVORA-28 [Concomitant]
  11. ONDANSETRON [Concomitant]
     Active Substance: ONDANSETRON

REACTIONS (1)
  - Hospitalisation [None]

NARRATIVE: CASE EVENT DATE: 20191021
